FAERS Safety Report 15722210 (Version 1)
Quarter: 2018Q4

REPORT INFORMATION
  Report Type: Spontaneous
  Country: US (occurrence: US)
  Receive Date: 20181213
  Receipt Date: 20181213
  Transmission Date: 20190205
  Serious: Yes (Other)
  Sender: FDA-Public Use
  Company Number: None

PATIENT
  Age: 40 Year
  Sex: Male
  Weight: 110.25 kg

DRUGS (1)
  1. VALSARTAN. [Suspect]
     Active Substance: VALSARTAN
     Indication: HYPERTENSION
     Dosage: ?          QUANTITY:90 TABLET(S);?
     Route: 048
     Dates: start: 20170301, end: 20180719

REACTIONS (5)
  - Weight increased [None]
  - Recalled product administered [None]
  - Abdominal distension [None]
  - Abdominal pain upper [None]
  - Feeling abnormal [None]

NARRATIVE: CASE EVENT DATE: 20171004
